FAERS Safety Report 4587670-2 (Version None)
Quarter: 2005Q1

REPORT INFORMATION
  Report Type: 
  Country: None (occurrence: None)
  Receive Date: 20050125
  Receipt Date: 20041006
  Transmission Date: 20050727
  Serious: No
  Sender: FDA-Public Use
  Company Number: USA040977613

PATIENT
  Age: 76 Year
  Sex: Female
  Weight: 37 kg

DRUGS (7)
  1. FORTEO [Suspect]
     Indication: OSTEOPOROSIS
     Dosage: 20 UG/1 DAY
     Dates: start: 20040901, end: 20041004
  2. ELAVIL [Concomitant]
  3. POTASSIUM CHLORIDE [Concomitant]
  4. MAGNESIUM [Concomitant]
  5. CALCIUM GLUCONATE [Concomitant]
  6. QUININE [Concomitant]
  7. MORFIN EPIDURAL (MORPHINE HYDROCHLORIDE) [Concomitant]

REACTIONS (9)
  - ANOREXIA [None]
  - ASTHENIA [None]
  - DISORIENTATION [None]
  - FEELING HOT [None]
  - HOT FLUSH [None]
  - INSOMNIA [None]
  - MUSCLE SPASMS [None]
  - NAUSEA [None]
  - WEIGHT DECREASED [None]
